FAERS Safety Report 8048022-6 (Version None)
Quarter: 2012Q1

REPORT INFORMATION
  Report Type: 
  Country: None (occurrence: None)
  Receive Date: 20120117
  Receipt Date: 20120109
  Transmission Date: 20120608
  Serious: Yes (Hospitalization, Other)
  Sender: FDA-Public Use
  Company Number: MX-BRISTOL-MYERS SQUIBB COMPANY-16176042

PATIENT
  Age: 75 Year
  Sex: Female
  Weight: 64 kg

DRUGS (2)
  1. ANASTROZOLE [Concomitant]
     Indication: BREAST CANCER
     Dosage: TAB
     Route: 048
     Dates: start: 20110121, end: 20111101
  2. IRBESARTAN AND HYDROCHLOROTHIAZIDE [Suspect]
     Indication: HYPERTENSION
     Dosage: 1 DF= 1TAB
     Route: 048
     Dates: start: 19910101

REACTIONS (2)
  - BREAST CANCER [None]
  - HYPERTENSION [None]
